FAERS Safety Report 4487899-8 (Version None)
Quarter: 2004Q4

REPORT INFORMATION
  Report Type: 
  Country: None (occurrence: None)
  Receive Date: 20041026
  Receipt Date: 20041011
  Transmission Date: 20050328
  Serious: Yes (Hospitalization, Other)
  Sender: FDA-Public Use
  Company Number: USA040671242

PATIENT
  Age: 79 Year
  Sex: Female
  Weight: 46 kg

DRUGS (7)
  1. FORTEO [Suspect]
     Indication: OSTEOPOROSIS
     Dosage: 20 UG/1 DAY
     Dates: start: 20031201, end: 20040819
  2. KCL        (POTASSIUM CHLORIDE) [Concomitant]
  3. PHENOBARBITAL TAB [Concomitant]
  4. DILANTIN [Concomitant]
  5. TUMS    (CALCIUM CARBONATE) [Concomitant]
  6. LASIX [Concomitant]
  7. ATENOLOL [Concomitant]

REACTIONS (17)
  - ARTHRALGIA [None]
  - ARTHRITIS [None]
  - CHEST WALL PAIN [None]
  - CONDITION AGGRAVATED [None]
  - CONSTIPATION [None]
  - CONTUSION [None]
  - FALL [None]
  - HEADACHE [None]
  - MUSCLE CRAMP [None]
  - MUSCULOSKELETAL STIFFNESS [None]
  - PAIN [None]
  - PAIN IN EXTREMITY [None]
  - PHARMACEUTICAL PRODUCT COMPLAINT [None]
  - SKIN DISCOLOURATION [None]
  - SWELLING [None]
  - TREATMENT NONCOMPLIANCE [None]
  - WEIGHT DECREASED [None]
